FAERS Safety Report 7000632-0 (Version None)
Quarter: 2010Q3

REPORT INFORMATION
  Report Type: 
  Country: None (occurrence: None)
  Receive Date: 20100920
  Receipt Date: 20100913
  Transmission Date: 20110219
  Serious: Yes (Other)
  Sender: FDA-Public Use
  Company Number: NL-JNJFOC-20100902483

PATIENT
  Sex: Female

DRUGS (2)
  1. SODIUM/POTASSIUM PHOSPHATE [Suspect]
     Indication: BOWEL PREPARATION
     Route: 048
  2. COAPROVEL [Suspect]
     Indication: PRODUCT USED FOR UNKNOWN INDICATION
     Route: 065

REACTIONS (1)
  - BLOOD POTASSIUM DECREASED [None]
